FAERS Safety Report 19145877 (Version 2)
Quarter: 2021Q2

REPORT INFORMATION
  Report Type: Spontaneous
  Country: FR (occurrence: FR)
  Receive Date: 20210416
  Receipt Date: 20210427
  Transmission Date: 20210717
  Serious: Yes (Hospitalization, Other)
  Sender: FDA-Public Use
  Company Number: FR-ABBVIE-21P-056-3861791-00

PATIENT
  Age: 74 Year
  Sex: Male
  Weight: 93 kg

DRUGS (1)
  1. ENANTONE LP [Suspect]
     Active Substance: LEUPROLIDE ACETATE
     Indication: PROSTATE CANCER
     Dosage: UNK
     Route: 030

REACTIONS (11)
  - Pain in extremity [Recovered/Resolved]
  - Abdominal pain [Recovered/Resolved]
  - Anaphylactic reaction [Recovered/Resolved]
  - Nausea [Recovered/Resolved]
  - Abdominal distension [Recovered/Resolved]
  - Headache [Recovered/Resolved]
  - Chest pain [Recovered/Resolved]
  - Hypertension [Recovered/Resolved]
  - Pallor [Recovered/Resolved]
  - Tremor [Recovered/Resolved]
  - Malaise [Recovered/Resolved]

NARRATIVE: CASE EVENT DATE: 20210225
